FAERS Safety Report 20220529 (Version 3)
Quarter: 2022Q1

REPORT INFORMATION
  Report Type: Spontaneous
  Country: US (occurrence: US)
  Receive Date: 20211223
  Receipt Date: 20220128
  Transmission Date: 20220423
  Serious: No
  Sender: FDA-Public Use
  Company Number: US-LUPIN PHARMACEUTICALS INC.-2021-24940

PATIENT
  Age: 77 Year
  Sex: Female

DRUGS (6)
  1. GAVILAX [Suspect]
     Active Substance: POLYETHYLENE GLYCOL 3350
     Indication: Diverticulitis
     Dosage: UNK, QD (1 CUP (17G) ONCE DAILY DISSOLVED IN A CUP OF COFFEE. )
     Route: 048
     Dates: start: 20211203
  2. GAVILAX [Suspect]
     Active Substance: POLYETHYLENE GLYCOL 3350
     Indication: Constipation
  3. IBUPROFEN [Concomitant]
     Active Substance: IBUPROFEN
     Indication: Pain
     Dosage: 600 MG, BID
     Route: 065
  4. TRAZODONE [Concomitant]
     Active Substance: TRAZODONE HYDROCHLORIDE
     Indication: Depression
     Dosage: 2 DOSAGE FORM, QD (2 TABLETS ONCE DAILY BEFORE BEDTIME)
     Route: 065
  5. SERTRALINE [Concomitant]
     Active Substance: SERTRALINE HYDROCHLORIDE
     Indication: Depression
     Dosage: 50 MG, QD
     Route: 065
  6. SERTRALINE [Concomitant]
     Active Substance: SERTRALINE HYDROCHLORIDE
     Indication: Sleep disorder

REACTIONS (4)
  - Poor quality product administered [Unknown]
  - Product packaging difficult to open [Unknown]
  - Product storage error [Unknown]
  - No adverse event [Unknown]
